FAERS Safety Report 4434104-4 (Version None)
Quarter: 2004Q3

REPORT INFORMATION
  Report Type: 
  Country: None (occurrence: None)
  Receive Date: 20040825
  Receipt Date: 20040811
  Transmission Date: 20050211
  Serious: Yes (Death, Hospitalization)
  Sender: FDA-Public Use
  Company Number: US_0401100302

PATIENT
  Age: 66 Year
  Sex: Male
  Weight: 84 kg

DRUGS (13)
  1. PEMETREXED [Suspect]
     Indication: PLEURAL MESOTHELIOMA
     Dosage: 500 MG/M2/OTHER
     Dates: start: 20031216
  2. CISPLATIN [Suspect]
     Indication: PLEURAL MESOTHELIOMA
     Dosage: 75 MG/M2/OTHER
     Dates: start: 20031216
  3. KYTRIL [Concomitant]
  4. DECADRON [Concomitant]
  5. COMPAZINE [Concomitant]
  6. FOLIC ACID [Concomitant]
  7. NADOLOL [Concomitant]
  8. MEGESTROL [Concomitant]
  9. VITAMIN B-12 [Concomitant]
  10. LIPITOR [Concomitant]
  11. METOPROLOL [Concomitant]
  12. PHENERGAN [Concomitant]
  13. LOMOTIL [Concomitant]

REACTIONS (45)
  - ABDOMINAL PAIN LOWER [None]
  - AGITATION [None]
  - ANOREXIA [None]
  - ANXIETY [None]
  - APNOEA [None]
  - ASTHENIA [None]
  - BLOOD CREATINE INCREASED [None]
  - BLOOD CREATININE INCREASED [None]
  - BLOOD PH DECREASED [None]
  - BLOOD SODIUM DECREASED [None]
  - BLOOD UREA INCREASED [None]
  - CANDIDIASIS [None]
  - CONDITION AGGRAVATED [None]
  - COUGH [None]
  - DECREASED APPETITE [None]
  - DEEP VEIN THROMBOSIS [None]
  - DEHYDRATION [None]
  - DIARRHOEA [None]
  - DYSPNOEA [None]
  - FATIGUE [None]
  - FEBRILE NEUTROPENIA [None]
  - GENERAL PHYSICAL HEALTH DETERIORATION [None]
  - GENERALISED OEDEMA [None]
  - HAEMATOCHEZIA [None]
  - HAEMOGLOBIN DECREASED [None]
  - HYPOTENSION [None]
  - INTERVERTEBRAL DISC DEGENERATION [None]
  - JOINT SWELLING [None]
  - PANCYTOPENIA [None]
  - PITTING OEDEMA [None]
  - PLEURAL EFFUSION [None]
  - PLEURAL FIBROSIS [None]
  - PLEURAL MESOTHELIOMA [None]
  - POLLAKIURIA [None]
  - POOR VENOUS ACCESS [None]
  - PYREXIA [None]
  - RESPIRATORY FAILURE [None]
  - SOMNOLENCE [None]
  - TACHYCARDIA [None]
  - TERMINAL STATE [None]
  - THERAPEUTIC AGENT TOXICITY [None]
  - URINARY HESITATION [None]
  - URINARY TRACT INFECTION [None]
  - URINE OUTPUT DECREASED [None]
  - WHITE BLOOD CELL COUNT DECREASED [None]
